FAERS Safety Report 5141662-3 (Version None)
Quarter: 2006Q4

REPORT INFORMATION
  Report Type: 
  Country: None (occurrence: None)
  Receive Date: 20061026
  Receipt Date: 20061005
  Transmission Date: 20070319
  Serious: Yes (Hospitalization)
  Sender: FDA-Public Use
  Company Number: TPA2006A01482

PATIENT
  Age: 70 Year
  Sex: Female
  Weight: 92.0802 kg

DRUGS (11)
  1. ACTOPLUS MET [Suspect]
     Indication: DIABETES MELLITUS NON-INSULIN-DEPENDENT
     Dosage: SEE IMAGE
     Route: 048
     Dates: start: 20040101
  2. ZETIA [Concomitant]
  3. ASPIRIN [Concomitant]
  4. FUROSEMIDE [Concomitant]
  5. VITAMIN E [Concomitant]
  6. ASCORBIC ACID [Concomitant]
  7. CALCIUM PLUS (VITAMINS NOS, MINERALS NOS) [Concomitant]
  8. GLUCOSAMINE PLUS (GLUCOSAMINE, COD-LIVER OIL, SALMON OIL, VITAMINS NOS [Concomitant]
  9. FISH OIL [Concomitant]
  10. NPH INSULIN [Concomitant]
  11. NOVOLOG INSULIN (INSULIN ASPART) [Concomitant]

REACTIONS (7)
  - ANXIETY [None]
  - BLOOD GLUCOSE DECREASED [None]
  - DRUG DISPENSING ERROR [None]
  - INCORRECT DOSE ADMINISTERED [None]
  - MYOCARDIAL INFARCTION [None]
  - PHARMACEUTICAL PRODUCT COMPLAINT [None]
  - SOMNOLENCE [None]
